FAERS Safety Report 6054975-8 (Version None)
Quarter: 2009Q1

REPORT INFORMATION
  Report Type: 
  Country: None (occurrence: None)
  Receive Date: 20090122
  Receipt Date: 20090107
  Transmission Date: 20090719
  Serious: Yes (Hospitalization, Other)
  Sender: FDA-Public Use
  Company Number: 55895

PATIENT
  Age: 36 Year
  Sex: Male

DRUGS (1)
  1. DOXYCYCLINE [Suspect]
     Indication: PNEUMONIA

REACTIONS (9)
  - BLOOD GLUCOSE ABNORMAL [None]
  - CHEST X-RAY ABNORMAL [None]
  - HYPOTENSION [None]
  - HYPOXIA [None]
  - JARISCH-HERXHEIMER REACTION [None]
  - PYREXIA [None]
  - Q FEVER [None]
  - TACHYCARDIA [None]
  - TACHYPNOEA [None]
